FAERS Safety Report 7372756-X (Version None)
Quarter: 2011Q1

REPORT INFORMATION
  Report Type: 
  Country: None (occurrence: None)
  Receive Date: 20110315
  Receipt Date: 20110303
  Transmission Date: 20110831
  Serious: Yes (Other)
  Sender: FDA-Public Use
  Company Number: 021919

PATIENT
  Sex: Female
  Weight: 54.5 kg

DRUGS (5)
  1. METHOTREXATE [Concomitant]
  2. PLAQUENIL [Concomitant]
  3. FOLIC ACID [Concomitant]
  4. MIRAPEX [Concomitant]
  5. CIMZIA [Suspect]
     Indication: RHEUMATOID ARTHRITIS
     Dosage: 200 MG 1X2 WEEKS, SUBCUTANEOUS)
     Route: 058
     Dates: start: 20100610, end: 20101209

REACTIONS (3)
  - PSORIASIS [None]
  - PAIN IN EXTREMITY [None]
  - LIVER FUNCTION TEST ABNORMAL [None]
